FAERS Safety Report 6708126-4 (Version None)
Quarter: 2010Q2

REPORT INFORMATION
  Report Type: 
  Country: None (occurrence: None)
  Receive Date: 20100503
  Receipt Date: 20090811
  Transmission Date: 20101027
  Serious: No
  Sender: FDA-Public Use
  Company Number: US-ASTRAZENECA-2009SE07564

PATIENT
  Age: 66 Year
  Sex: Male
  Weight: 40.8 kg

DRUGS (5)
  1. NEXIUM [Suspect]
     Indication: HELICOBACTER INFECTION
     Route: 048
  2. CRESTOR [Suspect]
     Route: 048
  3. ASPIRIN [Concomitant]
  4. ATENOLOL [Concomitant]
     Indication: VASCULAR GRAFT
  5. ATENOLOL [Concomitant]
     Indication: ATRIAL FIBRILLATION

REACTIONS (2)
  - HEADACHE [None]
  - PAIN IN EXTREMITY [None]
